FAERS Safety Report 5350393-6 (Version None)
Quarter: 2007Q2

REPORT INFORMATION
  Report Type: 
  Country: None (occurrence: None)
  Receive Date: 20070606
  Receipt Date: 20070606
  Transmission Date: 20071010
  Serious: Yes (Hospitalization)
  Sender: FDA-Public Use
  Company Number: None

PATIENT
  Age: 81 Year
  Sex: Male
  Weight: 109 kg

DRUGS (10)
  1. VANCOMYCIN [Suspect]
     Indication: PROPHYLAXIS
     Dosage: 500MG EVERY 12HOUR IV
     Route: 042
     Dates: start: 20070526
  2. PLAVIX [Concomitant]
  3. DILTIAZEM [Concomitant]
  4. PROZAC [Concomitant]
  5. ZOCOR [Concomitant]
  6. FUROSEMIDE [Concomitant]
  7. HYDROCHLOROTHIAZIDE [Concomitant]
  8. ISOSORBIDE DINITRATE [Concomitant]
  9. COZAAR [Concomitant]
  10. LOPRESSOR [Concomitant]

REACTIONS (4)
  - CHILLS [None]
  - DYSPNOEA [None]
  - RASH [None]
  - TREMOR [None]
